FAERS Safety Report 5418697-6 (Version None)
Quarter: 2007Q3

REPORT INFORMATION
  Report Type: 
  Country: None (occurrence: None)
  Receive Date: 20070817
  Receipt Date: 20070807
  Transmission Date: 20080115
  Serious: Yes (Hospitalization)
  Sender: FDA-Public Use
  Company Number: JP-PFIZER INC-2007066223

PATIENT
  Age: 78 Year
  Sex: Male

DRUGS (6)
  1. VFEND [Suspect]
     Indication: PYOTHORAX
     Dosage: DAILY DOSE:200MG
     Route: 048
  2. AMARYL [Concomitant]
     Route: 048
  3. PREDONINE [Concomitant]
     Route: 048
  4. BASEN [Concomitant]
     Route: 048
  5. RABEPRAZOLE SODIUM [Concomitant]
     Route: 048
  6. BACTRIM [Concomitant]
     Route: 048

REACTIONS (1)
  - HYPERGLYCAEMIA [None]
